FAERS Safety Report 5981961-6 (Version None)
Quarter: 2008Q4

REPORT INFORMATION
  Report Type: 
  Country: None (occurrence: None)
  Receive Date: 20081202
  Receipt Date: 20081110
  Transmission Date: 20090506
  Serious: Yes (Hospitalization)
  Sender: FDA-Public Use
  Company Number: 2008AL009406

PATIENT
  Age: 79 Year
  Sex: Female
  Weight: 61.6892 kg

DRUGS (23)
  1. DIGOXIN [Suspect]
     Indication: ATRIAL FIBRILLATION
     Dosage: 0.125MG, DAILY, PO
     Route: 048
  2. GLIPIZIDE [Concomitant]
  3. VERAPAMIL HYDROCHLORIDE [Concomitant]
  4. ADVAIR DISKUS 100/50 [Concomitant]
  5. CALAN [Concomitant]
  6. CLONAZEPAM [Concomitant]
  7. AMOXICILLIN [Concomitant]
  8. VENTOLIN [Concomitant]
  9. PULMICORT-100 [Concomitant]
  10. AVELOX [Concomitant]
  11. XOPENEX [Concomitant]
  12. LMX 5 [Concomitant]
  13. CELEXA [Concomitant]
  14. PRILOSEC [Concomitant]
  15. BACTRIBABAN [Concomitant]
  16. LOVENOX [Concomitant]
  17. COUMADIN [Concomitant]
  18. SIMVASTATIN [Concomitant]
  19. AMIODARONE HCL [Concomitant]
  20. ZOCOR [Concomitant]
  21. ULTRACET [Concomitant]
  22. ZEGERID [Concomitant]
  23. BYSTOLIC [Concomitant]

REACTIONS (37)
  - ACUTE SINUSITIS [None]
  - ALCOHOL USE [None]
  - AMNESIA [None]
  - ANXIETY [None]
  - AORTIC ARTERIOSCLEROSIS [None]
  - AORTIC STENOSIS [None]
  - ATRIAL FIBRILLATION [None]
  - BLOOD PRESSURE INCREASED [None]
  - BREAST PAIN [None]
  - CARDIAC MURMUR [None]
  - CERUMEN IMPACTION [None]
  - CONSTIPATION [None]
  - DEPRESSED MOOD [None]
  - DEVICE BREAKAGE [None]
  - DIZZINESS [None]
  - DYSPNOEA [None]
  - DYSPNOEA EXERTIONAL [None]
  - EAR PAIN [None]
  - ENERGY INCREASED [None]
  - FATIGUE [None]
  - FEAR [None]
  - GASTROOESOPHAGEAL REFLUX DISEASE [None]
  - HYPOPHAGIA [None]
  - LIP DISORDER [None]
  - LYMPHADENOPATHY [None]
  - MUSCULOSKELETAL PAIN [None]
  - NOCTURIA [None]
  - OROPHARYNGEAL PAIN [None]
  - OSTEOARTHRITIS [None]
  - PALPITATIONS [None]
  - PROCEDURAL PAIN [None]
  - REFUSAL OF TREATMENT BY PATIENT [None]
  - SINUS HEADACHE [None]
  - TENDERNESS [None]
  - TENDONITIS [None]
  - TREATMENT NONCOMPLIANCE [None]
  - TREMOR [None]
